FAERS Safety Report 7009691-2 (Version None)
Quarter: 2010Q3

REPORT INFORMATION
  Report Type: 
  Country: None (occurrence: None)
  Receive Date: 20100923
  Receipt Date: 20100917
  Transmission Date: 20110219
  Serious: Yes (Other)
  Sender: FDA-Public Use
  Company Number: JP-PFIZER INC-2010118916

PATIENT
  Age: 41 Year
  Sex: Female

DRUGS (3)
  1. SOLU-MEDROL [Suspect]
     Indication: SHOCK
     Dosage: 500 MG/DAY
     Route: 042
     Dates: start: 20100906, end: 20100906
  2. FAMOTIDINE [Concomitant]
     Indication: SHOCK
     Dosage: 20 MG/DAY
     Route: 042
     Dates: start: 20100906, end: 20100906
  3. SALMETEROL XINAFOATE [Concomitant]
     Indication: ASTHMA
     Dosage: UNK
     Route: 041

REACTIONS (1)
  - LIVER DISORDER [None]
